FAERS Safety Report 9464432 (Version 1)
Quarter: 2013Q3

REPORT INFORMATION
  Report Type: Spontaneous
  Country: US (occurrence: US)
  Receive Date: 20130819
  Receipt Date: 20130819
  Transmission Date: 20140515
  Serious: Yes (Other)
  Sender: FDA-Public Use
  Company Number: US-AMGEN-USASP2013057720

PATIENT
  Age: 32 Year
  Sex: Female

DRUGS (5)
  1. PROCRIT [Suspect]
     Indication: NEPHROGENIC ANAEMIA
     Dosage: 40000 UNIT, UNK
     Route: 065
     Dates: start: 20130701
  2. GABAPENTIN [Concomitant]
     Dosage: 300 MG, TWICE DAILY
  3. LASIX                              /00032601/ [Concomitant]
     Dosage: 40 MG, TWICE DAILY
  4. BISOPROLOL [Concomitant]
     Dosage: 10 MG, QD
  5. SODIUM BICARBONATE [Concomitant]
     Dosage: 650 MG, ONCE EVERY OTHER DAY

REACTIONS (2)
  - Haemoglobin abnormal [Not Recovered/Not Resolved]
  - Haematocrit abnormal [Unknown]
